FAERS Safety Report 14652473 (Version 1)
Quarter: 2018Q1

REPORT INFORMATION
  Report Type: Spontaneous
  Country: FR (occurrence: FR)
  Receive Date: 20180318
  Receipt Date: 20180318
  Transmission Date: 20180509
  Serious: Yes (Hospitalization, Other)
  Sender: FDA-Public Use
  Company Number: FR-MERCK KGAA-2043993

PATIENT
  Age: 57 Year
  Sex: Female

DRUGS (1)
  1. NOVOTHYROX [Suspect]
     Active Substance: LEVOTHYROXINE SODIUM
     Indication: PRODUCT USED FOR UNKNOWN INDICATION

REACTIONS (10)
  - Weight increased [None]
  - Dizziness [None]
  - Anxiety [None]
  - Negative thoughts [None]
  - Depressed mood [None]
  - Impaired driving ability [None]
  - Tri-iodothyronine free decreased [None]
  - Loss of personal independence in daily activities [None]
  - Panic attack [None]
  - Fear [None]

NARRATIVE: CASE EVENT DATE: 20170804
